FAERS Safety Report 19018984 (Version 1)
Quarter: 2021Q1

REPORT INFORMATION
  Report Type: Spontaneous
  Country: US (occurrence: US)
  Receive Date: 20210317
  Receipt Date: 20210317
  Transmission Date: 20210420
  Serious: Yes (Life-Threatening)
  Sender: FDA-Public Use
  Company Number: None

PATIENT
  Age: 31 Year
  Sex: Female
  Weight: 60.3 kg

DRUGS (5)
  1. DUPILUMAB [Suspect]
     Active Substance: DUPILUMAB
     Indication: DERMATITIS ATOPIC
     Dosage: ?          OTHER FREQUENCY:Q14D;?
     Route: 058
     Dates: start: 20200925, end: 20210225
  2. HYDROXYZINE 10MG (UP TO 50MG NIGHTLY) [Concomitant]
  3. TACROLIMUS 0.1% OINTMENT (TO FACE ONLY) [Concomitant]
  4. TRIAMCINOLONE 0.1% OINTMENT [Concomitant]
     Active Substance: TRIAMCINOLONE ACETONIDE
  5. CLOBETASOL 0.05% OINTMENT [Concomitant]
     Active Substance: CLOBETASOL

REACTIONS (6)
  - Skin exfoliation [None]
  - Eczema [None]
  - Alopecia [None]
  - Lymphadenopathy [None]
  - Dermatitis atopic [None]
  - Cutaneous T-cell lymphoma [None]

NARRATIVE: CASE EVENT DATE: 20210225
